FAERS Safety Report 5000027-5 (Version None)
Quarter: 2006Q2

REPORT INFORMATION
  Report Type: 
  Country: None (occurrence: None)
  Receive Date: 20060509
  Receipt Date: 20060503
  Transmission Date: 20061013
  Serious: Yes (Other)
  Sender: FDA-Public Use
  Company Number: RB-3253-2006

PATIENT
  Age: 22 Year
  Sex: Female

DRUGS (1)
  1. BUPRENORPHINE HCL [Suspect]
     Dosage: 4 MG
     Dates: start: 20060420

REACTIONS (1)
  - ASTHMA [None]
